FAERS Safety Report 4757747-7 (Version None)
Quarter: 2005Q3

REPORT INFORMATION
  Report Type: 
  Country: None (occurrence: None)
  Receive Date: 20050830
  Receipt Date: 20050818
  Transmission Date: 20060218
  Serious: Yes (Hospitalization)
  Sender: FDA-Public Use
  Company Number: 2005117243

PATIENT
  Age: 82 Year
  Sex: Male

DRUGS (3)
  1. ESTRACYT (ESTRAMUSTINE PHOSPHATE SODIUM) [Suspect]
     Indication: PROSTATE CANCER
     Dosage: 626.8 MG, ORAL
     Route: 048
     Dates: start: 20050701, end: 20050720
  2. TAMSULOSIN HYDROCHLORIDE (TAMSULOSIN HYDROCHLORIDE) [Concomitant]
  3. FLUTAMIDE [Concomitant]

REACTIONS (7)
  - DIET REFUSAL [None]
  - HEPATIC FUNCTION ABNORMAL [None]
  - LIVER ABSCESS [None]
  - METASTATIC NEOPLASM [None]
  - PORIOMANIA [None]
  - PSYCHIATRIC SYMPTOM [None]
  - SOLILOQUY [None]
